FAERS Safety Report 8991108 (Version 1)
Quarter: 2012Q4

REPORT INFORMATION
  Report Type: Spontaneous
  Country: US (occurrence: None)
  Receive Date: 20121227
  Receipt Date: 20121227
  Transmission Date: 20130627
  Serious: No
  Sender: FDA-Public Use
  Company Number: None

PATIENT
  Age: 56 Year
  Sex: Female

DRUGS (1)
  1. LISINOPRIL 20 MG [Suspect]
     Indication: BLOOD PRESSURE HIGH
     Route: 048
     Dates: start: 20121019, end: 20121218

REACTIONS (5)
  - Product substitution issue [None]
  - Blood pressure increased [None]
  - Drug ineffective [None]
  - Product quality issue [None]
  - Visual impairment [None]
